FAERS Safety Report 11026513 (Version 1)
Quarter: 2015Q2

REPORT INFORMATION
  Report Type: Spontaneous
  Country: US (occurrence: US)
  Receive Date: 20150414
  Receipt Date: 20150414
  Transmission Date: 20150821
  Serious: No
  Sender: FDA-Public Use
  Company Number: US-PFIZER INC-2015123390

PATIENT
  Sex: Female

DRUGS (1)
  1. LYRICA [Suspect]
     Active Substance: PREGABALIN
     Indication: DIABETES MELLITUS
     Dosage: UNK
     Dates: start: 20150328, end: 20150403

REACTIONS (5)
  - Hallucination [Unknown]
  - Disturbance in attention [Unknown]
  - Memory impairment [Unknown]
  - Product use issue [Unknown]
  - Feeling abnormal [Unknown]
